FAERS Safety Report 4958043-5 (Version None)
Quarter: 2006Q1

REPORT INFORMATION
  Report Type: 
  Country: None (occurrence: None)
  Receive Date: 20060330
  Receipt Date: 20060327
  Transmission Date: 20060701
  Serious: Yes (Other)
  Sender: FDA-Public Use
  Company Number: CA-MERCK-0603CAN00160

PATIENT
  Age: 72 Year
  Sex: Male

DRUGS (7)
  1. EZETIMIBE [Suspect]
     Indication: DYSLIPIDAEMIA
     Route: 048
     Dates: start: 20051006, end: 20051201
  2. NIACIN [Concomitant]
     Route: 065
     Dates: start: 20060310
  3. LEVOTHYROXINE SODIUM [Concomitant]
     Route: 065
     Dates: start: 20051024
  4. RAMIPRIL [Concomitant]
     Route: 065
     Dates: start: 20051024
  5. ATENOLOL [Concomitant]
     Route: 065
     Dates: start: 20051024
  6. COLESTIPOL HYDROCHLORIDE [Concomitant]
     Route: 065
     Dates: start: 20041127, end: 20060206
  7. METRONIDAZOLE [Concomitant]
     Route: 065
     Dates: start: 20050212, end: 20051021

REACTIONS (1)
  - TREMOR [None]
